FAERS Safety Report 25673396 (Version 1)
Quarter: 2025Q3

REPORT INFORMATION
  Report Type: Spontaneous
  Country: CA (occurrence: CA)
  Receive Date: 20250813
  Receipt Date: 20250813
  Transmission Date: 20251020
  Serious: Yes (Death)
  Sender: TEVA
  Company Number: CA-TEVA-VS-3362426

PATIENT
  Age: 78 Year
  Sex: Female

DRUGS (3)
  1. DOXYCYCLINE [Suspect]
     Active Substance: DOXYCYCLINE
     Indication: Pneumonia
     Route: 065
  2. AMOXICILLIN [Concomitant]
     Active Substance: AMOXICILLIN
     Indication: Product used for unknown indication
     Route: 065
  3. WARFARIN [Interacting]
     Active Substance: WARFARIN
     Indication: Deep vein thrombosis
     Route: 065

REACTIONS (6)
  - Anticoagulation drug level above therapeutic [Fatal]
  - Accidental death [Fatal]
  - Vasogenic cerebral oedema [Fatal]
  - Drug interaction [Fatal]
  - Intraventricular haemorrhage [Fatal]
  - Hydrocephalus [Fatal]
